FAERS Safety Report 7728284-2 (Version None)
Quarter: 2011Q3

REPORT INFORMATION
  Report Type: 
  Country: None (occurrence: None)
  Receive Date: 20110905
  Receipt Date: 20110830
  Transmission Date: 20111222
  Serious: Yes (Other)
  Sender: FDA-Public Use
  Company Number: PHEH2008US03454

PATIENT
  Sex: Male

DRUGS (4)
  1. ZOMETA [Suspect]
     Indication: OSTEOPOROSIS
     Dates: start: 20071201, end: 20080101
  2. BENICAR [Concomitant]
  3. LORTAB [Concomitant]
  4. VITAMIN B NOS [Concomitant]

REACTIONS (15)
  - PLEURAL EFFUSION [None]
  - NEOPLASM MALIGNANT [None]
  - GENERAL PHYSICAL HEALTH DETERIORATION [None]
  - PULMONARY HYPERTENSION [None]
  - OSTEONECROSIS OF JAW [None]
  - PROSTATOMEGALY [None]
  - ABDOMINAL PAIN [None]
  - PAIN [None]
  - ATELECTASIS [None]
  - CARDIOMEGALY [None]
  - LUNG NEOPLASM MALIGNANT [None]
  - PULMONARY OEDEMA [None]
  - PERICARDIAL EFFUSION [None]
  - ANXIETY [None]
  - DIARRHOEA [None]
